FAERS Safety Report 13422944 (Version 1)
Quarter: 2017Q2

REPORT INFORMATION
  Report Type: Spontaneous
  Country: US (occurrence: US)
  Receive Date: 20170410
  Receipt Date: 20170410
  Transmission Date: 20170830
  Serious: No
  Sender: FDA-Public Use
  Company Number: None

PATIENT
  Age: 76 Year
  Sex: Female
  Weight: 63.56 kg

DRUGS (3)
  1. DORZOLAMIDE HCL [Suspect]
     Active Substance: DORZOLAMIDE HYDROCHLORIDE
     Indication: GLAUCOMA
     Route: 031
     Dates: start: 20170120, end: 201702
  2. METOPROLOL. [Concomitant]
     Active Substance: METOPROLOL
  3. ESTRACE [Concomitant]
     Active Substance: ESTRADIOL

REACTIONS (2)
  - Ocular hyperaemia [None]
  - Eye pruritus [None]

NARRATIVE: CASE EVENT DATE: 201702
